FAERS Safety Report 14215831 (Version 1)
Quarter: 2017Q4

REPORT INFORMATION
  Report Type: Spontaneous
  Country: SK (occurrence: SK)
  Receive Date: 20171122
  Receipt Date: 20171122
  Transmission Date: 20180321
  Serious: Yes (Death, Other)
  Sender: FDA-Public Use
  Company Number: SK-SHIRE-SK201730360

PATIENT

DRUGS (2)
  1. HYQVIA [Suspect]
     Active Substance: HUMAN IMMUNOGLOBULIN G\HYALURONIDASE RECOMBINANT HUMAN
     Indication: HYPOGAMMAGLOBULINAEMIA
     Dosage: 10 G/100 ML, THE INFUSION PUMP USED THE DOSING PROGRAMME P160 AND THE 9 MM HIGH NEEDLE WITH A [SKIN]
     Route: 058
     Dates: start: 20170523
  2. HYQVIA [Suspect]
     Active Substance: HUMAN IMMUNOGLOBULIN G\HYALURONIDASE RECOMBINANT HUMAN
     Dosage: 15G/150 THE INFUSION PUMP USED THE DOSING PROGRAMME P160 AND THE 9 MM HIGH NEEDLE WITH A [SKIN] FOLD
     Route: 058
     Dates: start: 20170530

REACTIONS (1)
  - Death [Fatal]
